FAERS Safety Report 16809423 (Version 1)
Quarter: 2019Q3

REPORT INFORMATION
  Report Type: Spontaneous
  Country: IT (occurrence: IT)
  Receive Date: 20190916
  Receipt Date: 20190916
  Transmission Date: 20191005
  Serious: Yes (Hospitalization, Other)
  Sender: FDA-Public Use
  Company Number: IT-MYLANLABS-2019M1084872

PATIENT
  Age: 75 Year
  Sex: Female

DRUGS (1)
  1. METFORMIN [Suspect]
     Active Substance: METFORMIN HYDROCHLORIDE
     Indication: TYPE 2 DIABETES MELLITUS
     Dosage: 1800 MILLIGRAM, QD
     Route: 048

REACTIONS (18)
  - Dehydration [Unknown]
  - Respiratory failure [Unknown]
  - Dyspnoea [Unknown]
  - Blood creatinine increased [Unknown]
  - Metabolic acidosis [Recovered/Resolved]
  - Diarrhoea [Unknown]
  - Nutritional condition abnormal [Unknown]
  - Bronchospasm [Recovered/Resolved]
  - Influenza [Unknown]
  - Hypoglycaemia [Unknown]
  - Overdose [Unknown]
  - Azotaemia [Unknown]
  - Renal failure [Unknown]
  - Toxicity to various agents [Unknown]
  - Anuria [Unknown]
  - Hypotension [Unknown]
  - Blood potassium increased [Unknown]
  - Drug abuse [Unknown]
